FAERS Safety Report 11184249 (Version 1)
Quarter: 2015Q2

REPORT INFORMATION
  Report Type: Spontaneous
  Country: DE (occurrence: DE)
  Receive Date: 20150612
  Receipt Date: 20150612
  Transmission Date: 20150821
  Serious: Yes (Other)
  Sender: FDA-Public Use
  Company Number: DE-ROCHE-1591751

PATIENT
  Age: 74 Year
  Sex: Female

DRUGS (5)
  1. JANUVIA [Concomitant]
     Active Substance: SITAGLIPTIN PHOSPHATE
  2. LUCENTIS [Suspect]
     Active Substance: RANIBIZUMAB
     Indication: NEOVASCULAR AGE-RELATED MACULAR DEGENERATION
     Dosage: 10 MG/ML
     Route: 050
     Dates: start: 20141125
  3. LUCENTIS [Suspect]
     Active Substance: RANIBIZUMAB
     Dosage: 10 MG/ML
     Route: 050
     Dates: start: 20150107
  4. LUCENTIS [Suspect]
     Active Substance: RANIBIZUMAB
     Dosage: 10 MG/ML
     Route: 050
     Dates: start: 20150209
  5. METFORMIN [Concomitant]
     Active Substance: METFORMIN HYDROCHLORIDE
     Route: 065

REACTIONS (10)
  - Peripheral swelling [Unknown]
  - Pruritus [Unknown]
  - Diarrhoea [Unknown]
  - Visual impairment [Unknown]
  - Vulvovaginal pruritus [Unknown]
  - Circulatory collapse [Unknown]
  - Photopsia [Unknown]
  - Swollen tongue [Unknown]
  - Vitreous detachment [Unknown]
  - Hypersensitivity [Not Recovered/Not Resolved]

NARRATIVE: CASE EVENT DATE: 20141125
